FAERS Safety Report 6005536-8 (Version None)
Quarter: 2008Q4

REPORT INFORMATION
  Report Type: 
  Country: None (occurrence: None)
  Receive Date: 20081216
  Receipt Date: 20081216
  Transmission Date: 20090506
  Serious: Yes (Other)
  Sender: FDA-Public Use
  Company Number: None

PATIENT
  Sex: Female
  Weight: 64.4108 kg

DRUGS (2)
  1. AMITIZA [Suspect]
     Indication: CONSTIPATION
     Dosage: 24 MCG 1 PILL TWICE A DAY PO
     Route: 048
     Dates: start: 20081206, end: 20081207
  2. AMITIZA [Suspect]
     Indication: CONSTIPATION
     Dosage: 24 MCG 1 PILL TWICE A DAY PO
     Route: 048
     Dates: start: 20081207, end: 20081212

REACTIONS (7)
  - ANXIETY [None]
  - ASTHENIA [None]
  - DYSPNOEA [None]
  - FEELING ABNORMAL [None]
  - HEART RATE INCREASED [None]
  - HYPERHIDROSIS [None]
  - NAUSEA [None]
